FAERS Safety Report 7480711-4 (Version None)
Quarter: 2011Q2

REPORT INFORMATION
  Report Type: 
  Country: None (occurrence: None)
  Receive Date: 20110516
  Receipt Date: 20110329
  Transmission Date: 20111010
  Serious: Yes (Hospitalization, Other)
  Sender: FDA-Public Use
  Company Number: US-BAYER-201038247NA

PATIENT
  Age: 18 Year
  Sex: Female
  Weight: 72.562 kg

DRUGS (13)
  1. SPIRONOLACTONE [Concomitant]
     Dosage: UNK
     Dates: start: 20050101
  2. MULTI-VITAMIN [Concomitant]
     Dosage: UNK UNK, QD
  3. POTASSIUM [POTASSIUM] [Concomitant]
  4. DETROL LA [Concomitant]
  5. NORVASC [Concomitant]
  6. ASCORBIC ACID [Concomitant]
  7. DROSPIRENONE AND ETHINYL ESTRADIOL [Suspect]
     Indication: MENSTRUAL CYCLE MANAGEMENT
  8. NSAID'S [Concomitant]
  9. SYNTHROID [Concomitant]
  10. TETRACYCLINE [Concomitant]
     Indication: ACNE
  11. YASMIN [Suspect]
     Indication: MENSTRUAL CYCLE MANAGEMENT
     Dosage: UNK
     Dates: start: 20050301, end: 20050301
  12. YAZ [Suspect]
     Indication: MENSTRUAL CYCLE MANAGEMENT
  13. LISINOPRIL [Concomitant]
     Dosage: 20 MG, QD
     Dates: start: 20040801, end: 20080101

REACTIONS (4)
  - HEPATOMEGALY [None]
  - SPLENOMEGALY [None]
  - HEPATIC VEIN THROMBOSIS [None]
  - BUDD-CHIARI SYNDROME [None]
